FAERS Safety Report 10707557 (Version 1)
Quarter: 2015Q1

REPORT INFORMATION
  Report Type: Spontaneous
  Country: US (occurrence: None)
  Receive Date: 20150112
  Receipt Date: 20150112
  Transmission Date: 20150721
  Serious: Yes (Disabling)
  Sender: FDA-Public Use
  Company Number: None

PATIENT
  Age: 49 Year
  Sex: Female
  Weight: 108.86 kg

DRUGS (2)
  1. CIPRO [Suspect]
     Active Substance: CIPROFLOXACIN HYDROCHLORIDE
     Indication: DEVICE RELATED INFECTION
     Route: 048
  2. LEVAQUIN [Suspect]
     Active Substance: LEVOFLOXACIN

REACTIONS (7)
  - Muscle rupture [None]
  - Fall [None]
  - Paraesthesia [None]
  - VIIth nerve paralysis [None]
  - Joint injury [None]
  - Muscle spasms [None]
  - Arthralgia [None]
